FAERS Safety Report 17559867 (Version 2)
Quarter: 2020Q1

REPORT INFORMATION
  Report Type: Spontaneous
  Country: DE (occurrence: DE)
  Receive Date: 20200319
  Receipt Date: 20200331
  Transmission Date: 20200409
  Serious: Yes (Hospitalization)
  Sender: FDA-Public Use
  Company Number: DE-NOVOPROD-717708

PATIENT
  Age: 15 Year
  Sex: Male
  Weight: 46 kg

DRUGS (2)
  1. LEVEMIR [Suspect]
     Active Substance: INSULIN DETEMIR
     Indication: TYPE 1 DIABETES MELLITUS
     Dosage: 21.5-0-21.5
     Route: 058
     Dates: end: 20191022
  2. NOVORAPID [Suspect]
     Active Substance: INSULIN ASPART
     Indication: TYPE 1 DIABETES MELLITUS
     Dosage: 1 IE/BE
     Route: 058

REACTIONS (5)
  - Diabetic ketoacidosis [Recovered/Resolved]
  - Product administration error [Recovered/Resolved]
  - Vomiting [Recovered/Resolved]
  - Product dose omission [Recovered/Resolved]
  - Hyperglycaemia [Recovered/Resolved]

NARRATIVE: CASE EVENT DATE: 20191020
